FAERS Safety Report 5012509-0 (Version None)
Quarter: 2006Q2

REPORT INFORMATION
  Report Type: 
  Country: None (occurrence: None)
  Receive Date: 20060411
  Receipt Date: 20060126
  Transmission Date: 20061013
  Serious: No
  Sender: FDA-Public Use
  Company Number: 2006S1000024

PATIENT
  Age: 63 Year
  Sex: Male
  Weight: 104.5 kg

DRUGS (4)
  1. CUBICIN [Suspect]
     Indication: ARTHRITIS BACTERIAL
     Dosage: 500 MG;Q24H; IV
     Route: 042
     Dates: start: 20060101, end: 20060119
  2. VANCOMYCIN [Concomitant]
  3. LOTREL [Concomitant]
  4. METOPROLOL TARTRATE [Concomitant]

REACTIONS (2)
  - BLOOD CREATINE PHOSPHOKINASE INCREASED [None]
  - SWELLING FACE [None]
